FAERS Safety Report 5893244-3 (Version None)
Quarter: 2008Q3

REPORT INFORMATION
  Report Type: 
  Country: None (occurrence: None)
  Receive Date: 20080922
  Receipt Date: 20080922
  Transmission Date: 20090109
  Serious: Yes (Hospitalization)
  Sender: FDA-Public Use
  Company Number: None

PATIENT
  Age: 47 Year
  Sex: Male
  Weight: 92.9874 kg

DRUGS (1)
  1. CELEBREX [Suspect]
     Indication: MUSCULOSKELETAL PAIN
     Dosage: 1 ONCE DAILY PO
     Route: 048
     Dates: start: 20080821, end: 20080910

REACTIONS (1)
  - NEPHROLITHIASIS [None]
